FAERS Safety Report 4626242-8 (Version None)
Quarter: 2005Q2

REPORT INFORMATION
  Report Type: 
  Country: None (occurrence: None)
  Receive Date: 20050331
  Receipt Date: 20040713
  Transmission Date: 20051028
  Serious: Yes (Other)
  Sender: FDA-Public Use
  Company Number: 200413451BCC

PATIENT
  Sex: Female

DRUGS (5)
  1. ALEVE [Suspect]
     Indication: PAIN IN EXTREMITY
     Dosage: 220 MG, PRN, ORAL
     Route: 048
  2. COUMADIN [Concomitant]
  3. HIGH BLOOD PRESSURE MEDICATION [Concomitant]
  4. VITAMINS NOS [Concomitant]
  5. WATER PILL NOS [Concomitant]

REACTIONS (1)
  - HAEMATOCHEZIA [None]
